FAERS Safety Report 15536823 (Version 1)
Quarter: 2018Q4

REPORT INFORMATION
  Report Type: Spontaneous
  Country: US (occurrence: US)
  Receive Date: 20181016
  Receipt Date: 20181016
  Transmission Date: 20190205
  Serious: Yes (Other)
  Sender: FDA-Public Use
  Company Number: None

PATIENT
  Age: 69 Year
  Sex: Male
  Weight: 94.05 kg

DRUGS (19)
  1. CLOPIDOGREL [Concomitant]
     Active Substance: CLOPIDOGREL BISULFATE
  2. ACYLOVIR [Concomitant]
  3. GABAPENTIN. [Concomitant]
     Active Substance: GABAPENTIN
  4. ZOLPIDEM [Concomitant]
     Active Substance: ZOLPIDEM\ZOLPIDEM TARTRATE
  5. TAMSULOSIN [Concomitant]
     Active Substance: TAMSULOSIN
  6. ASPIRIN. [Concomitant]
     Active Substance: ASPIRIN
  7. REPATHA [Suspect]
     Active Substance: EVOLOCUMAB
     Indication: ISCHAEMIC HEART DISEASE PROPHYLAXIS
     Dosage: ?          QUANTITY:140 MG/ML;OTHER FREQUENCY:EVERY 14 DAYS;OTHER ROUTE:INJECTED SUBCUTANEOUS?
     Dates: start: 20180926, end: 20181011
  8. IVIG [Concomitant]
     Active Substance: HUMAN IMMUNOGLOBULIN G
  9. REPATHA [Suspect]
     Active Substance: EVOLOCUMAB
     Indication: HYPERLIPIDAEMIA
     Dosage: ?          QUANTITY:140 MG/ML;OTHER FREQUENCY:EVERY 14 DAYS;OTHER ROUTE:INJECTED SUBCUTANEOUS?
     Dates: start: 20180926, end: 20181011
  10. SULFAMETH / TRIMETHOPRIM [Concomitant]
  11. CPAP [Concomitant]
     Active Substance: DEVICE
  12. METOPROLOL. [Concomitant]
     Active Substance: METOPROLOL
  13. EZETIMIBE. [Concomitant]
     Active Substance: EZETIMIBE
  14. CLOMOTRIZOL [Concomitant]
  15. LOSARTAN. [Concomitant]
     Active Substance: LOSARTAN
  16. MONOSODIUM ISOSORBIDE ER [Concomitant]
  17. ASPIRIN. [Concomitant]
     Active Substance: ASPIRIN
  18. TYLENOL [Concomitant]
     Active Substance: ACETAMINOPHEN
  19. BENADRYL [Concomitant]
     Active Substance: DIPHENHYDRAMINE HYDROCHLORIDE

REACTIONS (3)
  - Chest pain [None]
  - Drug hypersensitivity [None]
  - Hypersensitivity [None]

NARRATIVE: CASE EVENT DATE: 20181011
